FAERS Safety Report 11123887 (Version 1)
Quarter: 2015Q2

REPORT INFORMATION
  Report Type: Spontaneous
  Country: US (occurrence: US)
  Receive Date: 20150520
  Receipt Date: 20150520
  Transmission Date: 20150821
  Serious: Yes (Other)
  Sender: FDA-Public Use
  Company Number: US-ROCHE-1580119

PATIENT
  Sex: Female

DRUGS (1)
  1. PEGASYS [Suspect]
     Active Substance: PEGINTERFERON ALFA-2A
     Indication: HEPATITIS C
     Route: 065
     Dates: start: 2011

REACTIONS (5)
  - Weight increased [Unknown]
  - Encephalopathy [Unknown]
  - Alopecia [Unknown]
  - Umbilical hernia [Unknown]
  - Rash [Unknown]
